FAERS Safety Report 9801309 (Version 1)
Quarter: 2014Q1

REPORT INFORMATION
  Report Type: Spontaneous
  Country: US (occurrence: US)
  Receive Date: 20140107
  Receipt Date: 20140107
  Transmission Date: 20141002
  Serious: No
  Sender: FDA-Public Use
  Company Number: US-GLAXOSMITHKLINE-A1045577A

PATIENT
  Age: 36 Year
  Sex: Female

DRUGS (13)
  1. BENLYSTA [Suspect]
     Indication: SYSTEMIC LUPUS ERYTHEMATOSUS
     Dosage: 673MG UNKNOWN
     Route: 042
  2. BENADRYL [Concomitant]
  3. ACETAMINOPHEN [Concomitant]
  4. PREMARIN [Concomitant]
  5. LACTOBACILLUS [Concomitant]
  6. ZYRTEC [Concomitant]
  7. REGLAN [Concomitant]
  8. VITAMIN [Concomitant]
  9. SYNTHROID [Concomitant]
  10. FISH OIL [Concomitant]
  11. ZOLOFT [Concomitant]
  12. VITAMIN D [Concomitant]
  13. FLONASE [Concomitant]

REACTIONS (1)
  - Wrong technique in drug usage process [Unknown]
